FAERS Safety Report 21533814 (Version 1)
Quarter: 2022Q4

REPORT INFORMATION
  Report Type: Spontaneous
  Country: US (occurrence: None)
  Receive Date: 20221031
  Receipt Date: 20221031
  Transmission Date: 20230113
  Serious: Yes (Other)
  Sender: FDA-Public Use
  Company Number: None

PATIENT
  Age: 44 Year
  Sex: Female
  Weight: 76.05 kg

DRUGS (4)
  1. HEATHER [Suspect]
     Active Substance: NORETHINDRONE
     Dosage: OTHER QUANTITY : 1 TABLET(S);?
     Route: 048
  2. FAMVIR [Concomitant]
     Active Substance: FAMCICLOVIR
  3. PROAIR HFA [Concomitant]
     Active Substance: ALBUTEROL SULFATE
  4. VITAMIN D [Concomitant]
     Active Substance: VITAMIN D NOS

REACTIONS (1)
  - Documented hypersensitivity to administered product [None]

NARRATIVE: CASE EVENT DATE: 20220909
